FAERS Safety Report 8048970-7 (Version None)
Quarter: 2012Q1

REPORT INFORMATION
  Report Type: 
  Country: None (occurrence: None)
  Receive Date: 20120110
  Receipt Date: 20111227
  Transmission Date: 20120608
  Serious: Yes (Other)
  Sender: FDA-Public Use
  Company Number: 1000026686

PATIENT
  Age: 77 Year
  Sex: Male
  Weight: 91 kg

DRUGS (13)
  1. VIANI (SERETIDE) (SERETIDE) [Concomitant]
  2. BRONCHOPARAT (THEOPHYLLINE) (THEOPHYLLINE) [Concomitant]
  3. TORSEMIDE [Concomitant]
  4. ASS (ACETYLSALICYLIC ACID) (ACETYLSALICYLIC ACID) [Concomitant]
  5. DOXEPIN (DOXEPIN) (DOXEPIN) [Concomitant]
  6. SPIRIVA (TIOTROPIUM BROMIDE) (TIOTROPIUM BROMIDE) [Concomitant]
  7. OXYGEN (OXYGEN) (OXYGEN) [Concomitant]
  8. ROFLUMILAST (ROFLUMILAST) (TABLETS) [Suspect]
     Indication: CHRONIC OBSTRUCTIVE PULMONARY DISEASE
     Dosage: 500 MCG (500 MCG, 1 IN 1 D), ORAL
     Route: 048
     Dates: start: 20110708, end: 20110730
  9. PREDNISOLONE [Concomitant]
  10. ALBUTEROL [Concomitant]
  11. AMOXICILLINE (AMOXICILLIN) (AMOXICILLIN) [Concomitant]
  12. BISOPROLOL FUMARATE [Concomitant]
  13. VALPROAT (VALPROATE SODIUM) (VALPROATE SODIUM) [Concomitant]

REACTIONS (1)
  - THROMBOCYTOPENIA [None]
